FAERS Safety Report 9803523 (Version 1)
Quarter: 2014Q1

REPORT INFORMATION
  Report Type: Spontaneous
  Country: US (occurrence: US)
  Receive Date: 20140108
  Receipt Date: 20140108
  Transmission Date: 20141002
  Serious: No
  Sender: FDA-Public Use
  Company Number: US-GLAXOSMITHKLINE-A1003738A

PATIENT
  Age: 67 Year
  Sex: Male
  Weight: 80.9 kg

DRUGS (4)
  1. LOVAZA [Suspect]
     Indication: BLOOD CHOLESTEROL
     Dosage: 2G TWICE PER DAY
     Route: 048
     Dates: start: 201205, end: 20121126
  2. MULTI-VITAMIN [Concomitant]
  3. MAGNESIUM SUPPLEMENT [Concomitant]
  4. VITAMIN B12 [Concomitant]

REACTIONS (1)
  - Blood cholesterol increased [Not Recovered/Not Resolved]
